FAERS Safety Report 10235367 (Version 5)
Quarter: 2014Q3

REPORT INFORMATION
  Report Type: Spontaneous
  Country: JP (occurrence: None)
  Receive Date: 20140611
  Receipt Date: 20140910
  Transmission Date: 20150326
  Serious: Yes (Death, Hospitalization, Other)
  Sender: FDA-Public Use
  Company Number: ADR-2014-00988

PATIENT
  Age: 68 Year
  Sex: Male
  Weight: 71 kg

DRUGS (1)
  1. GABALON INTRATHECAL [Suspect]
     Active Substance: BACLOFEN
     Dates: start: 20140520, end: 20140602

REACTIONS (7)
  - Device computer issue [None]
  - Pneumonia aspiration [None]
  - Device infusion issue [None]
  - Malaise [None]
  - Procedural complication [None]
  - Device issue [None]
  - Medical device complication [None]

NARRATIVE: CASE EVENT DATE: 20140602
